FAERS Safety Report 6950652-7 (Version None)
Quarter: 2010Q3

REPORT INFORMATION
  Report Type: 
  Country: None (occurrence: None)
  Receive Date: 20100828
  Receipt Date: 20100218
  Transmission Date: 20110219
  Serious: No
  Sender: FDA-Public Use
  Company Number: US-ABBOTT-10P-163-0627807-00

PATIENT
  Sex: Female

DRUGS (2)
  1. NIASPAN [Suspect]
     Indication: PRODUCT USED FOR UNKNOWN INDICATION
  2. NIASPAN [Suspect]
     Indication: BLOOD CHOLESTEROL INCREASED

REACTIONS (1)
  - PRURITUS [None]
